FAERS Safety Report 9741512 (Version 1)
Quarter: 2013Q4

REPORT INFORMATION
  Report Type: Spontaneous
  Country: GB (occurrence: GB)
  Receive Date: 20131209
  Receipt Date: 20131209
  Transmission Date: 20140711
  Serious: Yes (Other)
  Sender: FDA-Public Use
  Company Number: GB-MYLANLABS-2013S1026902

PATIENT
  Age: 72 Year
  Sex: 0

DRUGS (3)
  1. DOXAZOCIN [Suspect]
     Indication: PROSTATE VOLUME STUDY
     Route: 048
     Dates: start: 201211, end: 201302
  2. FINASTERIDE [Concomitant]
     Indication: PRODUCT USED FOR UNKNOWN INDICATION
  3. RAMIPRIL [Concomitant]
     Indication: PRODUCT USED FOR UNKNOWN INDICATION

REACTIONS (2)
  - Hypersensitivity [Not Recovered/Not Resolved]
  - Local swelling [Recovering/Resolving]
